FAERS Safety Report 19048118 (Version 1)
Quarter: 2021Q1

REPORT INFORMATION
  Report Type: Spontaneous
  Country: CN (occurrence: CN)
  Receive Date: 20210324
  Receipt Date: 20210324
  Transmission Date: 20210420
  Serious: Yes (Other)
  Sender: FDA-Public Use
  Company Number: CN-LUPIN PHARMACEUTICALS INC.-2021-03576

PATIENT

DRUGS (5)
  1. IBRUTINIB [Suspect]
     Active Substance: IBRUTINIB
     Indication: CENTRAL NERVOUS SYSTEM LYMPHOMA
     Dosage: 560 MILLIGRAM, QD (GIVEN FOR 21 CONSECUTIVE DAYS; EVERY 21 DAYS WERE CONSIDERED AS ONE COURSE OF TRE
     Route: 065
  2. IFOSFAMIDE. [Suspect]
     Active Substance: IFOSFAMIDE
     Indication: CENTRAL NERVOUS SYSTEM LYMPHOMA
     Dosage: 1.5 GRAM PER SQUARE METRE ON DAY 2; EVERY 21 DAYS WERE CONSIDERED AS ONE COURSE OF TREATMENT
     Route: 065
  3. LIPOSOMAL DOXORUBICIN HYDROCHLORIDE [Suspect]
     Active Substance: DOXORUBICIN HYDROCHLORIDE
     Indication: CENTRAL NERVOUS SYSTEM LYMPHOMA
     Dosage: 25 MILLIGRAM/SQ. METER, ON DAY 3; EVERY 21 DAYS WERE CONSIDERED AS ONE COURSE OF TREATMENT
     Route: 065
  4. METHYLPREDNISOLONE. [Suspect]
     Active Substance: METHYLPREDNISOLONE
     Indication: CENTRAL NERVOUS SYSTEM LYMPHOMA
     Dosage: 80 MILLIGRAM, QD, FROM DAY 1 TO DAY 3; EVERY 21 DAYS WERE CONSIDERED AS ONE COURSE OF TREATMENT
     Route: 065
  5. METHOTREXATE. [Suspect]
     Active Substance: METHOTREXATE
     Indication: CENTRAL NERVOUS SYSTEM LYMPHOMA
     Dosage: 3.5 GRAM PER SQUARE METRE ON DAY 1; EVERY 21 DAYS WERE CONSIDERED AS ONE COURSE OF TREATMENT
     Route: 065

REACTIONS (1)
  - Pneumonia fungal [Recovered/Resolved]
